FAERS Safety Report 16793258 (Version 1)
Quarter: 2019Q3

REPORT INFORMATION
  Report Type: Spontaneous
  Country: TR (occurrence: TR)
  Receive Date: 20190911
  Receipt Date: 20190911
  Transmission Date: 20191005
  Serious: Yes (Hospitalization, Other)
  Sender: FDA-Public Use
  Company Number: TR-ROCHE-2393737

PATIENT
  Age: 85 Year
  Sex: Male
  Weight: 87 kg

DRUGS (15)
  1. CYCLOPHOSPHAMIDE. [Suspect]
     Active Substance: CYCLOPHOSPHAMIDE
     Indication: HIGH-GRADE B-CELL LYMPHOMA
     Route: 065
     Dates: start: 20190328, end: 20190430
  2. PREDNISOLONE. [Suspect]
     Active Substance: PREDNISOLONE
     Indication: HIGH-GRADE B-CELL LYMPHOMA
     Route: 065
     Dates: start: 20190529, end: 20190730
  3. PEN-OS [Concomitant]
     Dosage: 5 DAYS IN A WEEK
     Route: 065
  4. RITUXIMAB. [Suspect]
     Active Substance: RITUXIMAB
     Route: 065
     Dates: start: 20190328, end: 20190430
  5. RITUXIMAB. [Suspect]
     Active Substance: RITUXIMAB
     Route: 065
     Dates: start: 20190529, end: 20190730
  6. VINCRISTINE [Suspect]
     Active Substance: VINCRISTINE
     Indication: HIGH-GRADE B-CELL LYMPHOMA
     Route: 065
     Dates: start: 20190328, end: 20190430
  7. RITUXIMAB. [Suspect]
     Active Substance: RITUXIMAB
     Indication: PRODUCT USED FOR UNKNOWN INDICATION
     Route: 065
     Dates: start: 20181203, end: 20190214
  8. PREDNISONE. [Suspect]
     Active Substance: PREDNISONE
     Indication: HIGH-GRADE B-CELL LYMPHOMA
     Route: 065
     Dates: start: 20190328, end: 20190430
  9. BACTRIM [Concomitant]
     Active Substance: SULFAMETHOXAZOLE\TRIMETHOPRIM
  10. METOPROLOL. [Concomitant]
     Active Substance: METOPROLOL
     Route: 065
  11. GEMCITABINE. [Suspect]
     Active Substance: GEMCITABINE
     Indication: HIGH-GRADE B-CELL LYMPHOMA
     Route: 065
     Dates: start: 20190529, end: 20190730
  12. VALTREX [Concomitant]
     Active Substance: VALACYCLOVIR HYDROCHLORIDE
     Route: 065
  13. DOXORUBICIN [Suspect]
     Active Substance: DOXORUBICIN
     Indication: HIGH-GRADE B-CELL LYMPHOMA
     Route: 065
     Dates: start: 20190328, end: 20190430
  14. BENDAMUSTINE [Suspect]
     Active Substance: BENDAMUSTINE
     Indication: HIGH-GRADE B-CELL LYMPHOMA
     Route: 065
     Dates: start: 20181203, end: 20190214
  15. CO-DIOVAN [Concomitant]
     Active Substance: HYDROCHLOROTHIAZIDE\VALSARTAN
     Route: 065

REACTIONS (4)
  - Renal impairment [Unknown]
  - Febrile neutropenia [Unknown]
  - Loss of consciousness [Unknown]
  - Remission not achieved [Unknown]
